FAERS Safety Report 7801936-1 (Version None)
Quarter: 2011Q4

REPORT INFORMATION
  Report Type: 
  Country: None (occurrence: None)
  Receive Date: 20111007
  Receipt Date: 20111007
  Transmission Date: 20120403
  Serious: No
  Sender: FDA-Public Use
  Company Number: None

PATIENT

DRUGS (2)
  1. CLONIDINE HCL [Suspect]
     Dates: start: 20111006, end: 20111031
  2. GLYBURIDE AND METFORMIN HYDROCHL [Concomitant]
     Dates: start: 20111006, end: 20111031

REACTIONS (2)
  - MEDICATION ERROR [None]
  - PRODUCT LABEL ISSUE [None]
